FAERS Safety Report 23307718 (Version 1)
Quarter: 2023Q4

REPORT INFORMATION
  Report Type: Spontaneous
  Country: US (occurrence: None)
  Receive Date: 20231215
  Receipt Date: 20231215
  Transmission Date: 20240110
  Serious: Yes (Other)
  Sender: FDA-Public Use
  Company Number: None

PATIENT
  Age: 51 Year
  Sex: Female
  Weight: 121.5 kg

DRUGS (11)
  1. DOVE DERMACARE SCALP PURE DAILY CARE ANTI-DANDRUFF [Suspect]
     Active Substance: PYRITHIONE ZINC
     Indication: Dandruff
     Dosage: OTHER QUANTITY : 1 SQUIRT;?OTHER FREQUENCY : TWICE A WEEK;?
     Route: 061
     Dates: start: 20231207, end: 20231208
  2. Oxygen concentrator [Concomitant]
  3. GLASSIA [Concomitant]
     Active Substance: .ALPHA.1-PROTEINASE INHIBITOR HUMAN
  4. TRELEGY ELLIPTA [Concomitant]
     Active Substance: FLUTICASONE FUROATE\UMECLIDINIUM BROMIDE\VILANTEROL TRIFENATATE
  5. OMEPRAZOLE [Concomitant]
     Active Substance: OMEPRAZOLE
  6. ALBUTEROL [Concomitant]
     Active Substance: ALBUTEROL
  7. Mct coconut oil [Concomitant]
  8. GLUCOSAMINE [Concomitant]
     Active Substance: GLUCOSAMINE
  9. HERBALS\TURMERIC [Concomitant]
     Active Substance: HERBALS\TURMERIC
  10. senior vitamin [Concomitant]
  11. ASPIRIN [Concomitant]
     Active Substance: ASPIRIN

REACTIONS (1)
  - Hypersensitivity [None]

NARRATIVE: CASE EVENT DATE: 20231215
